FAERS Safety Report 8214072-X (Version None)
Quarter: 2012Q1

REPORT INFORMATION
  Report Type: 
  Country: None (occurrence: None)
  Receive Date: 20120314
  Receipt Date: 20120314
  Transmission Date: 20120608
  Serious: Yes (Other)
  Sender: FDA-Public Use
  Company Number: None

PATIENT
  Age: 27 Year
  Sex: Female
  Weight: 70.9 kg

DRUGS (1)
  1. NORGESTREL/ETHINYL ESTRADIOL [Suspect]
     Indication: CONTRACEPTION
     Dosage: MG EVERY DAY PO
     Route: 048
     Dates: start: 20010701, end: 20110802

REACTIONS (2)
  - PREGNANCY ON ORAL CONTRACEPTIVE [None]
  - PRODUCT QUALITY ISSUE [None]
